FAERS Safety Report 5816552-0 (Version None)
Quarter: 2008Q3

REPORT INFORMATION
  Report Type: 
  Country: None (occurrence: None)
  Receive Date: 20080717
  Receipt Date: 20080717
  Transmission Date: 20090109
  Serious: Yes (Hospitalization)
  Sender: FDA-Public Use
  Company Number: None

PATIENT
  Age: 80 Year
  Sex: Female

DRUGS (1)
  1. ISOVUE-370 [Suspect]
     Dosage: 100ML IV X 1
     Route: 042

REACTIONS (3)
  - HYPERHIDROSIS [None]
  - HYPOTENSION [None]
  - INFUSION SITE EXTRAVASATION [None]
